FAERS Safety Report 6933857-0 (Version None)
Quarter: 2010Q3

REPORT INFORMATION
  Report Type: 
  Country: None (occurrence: None)
  Receive Date: 20100820
  Receipt Date: 20100812
  Transmission Date: 20110219
  Serious: No
  Sender: FDA-Public Use
  Company Number: US-US-EMD SERONO, INC.-7014284

PATIENT
  Sex: Female

DRUGS (2)
  1. REBIF [Suspect]
     Indication: PRODUCT USED FOR UNKNOWN INDICATION
     Route: 058
     Dates: start: 20040830
  2. TEGRETOL [Concomitant]
     Indication: MIGRAINE

REACTIONS (3)
  - FOLLICULITIS [None]
  - HEADACHE [None]
  - VISION BLURRED [None]
